FAERS Safety Report 20848111 (Version 1)
Quarter: 2022Q2

REPORT INFORMATION
  Report Type: Spontaneous
  Country: US (occurrence: None)
  Receive Date: 20220518
  Receipt Date: 20220518
  Transmission Date: 20220720
  Serious: Yes (Hospitalization)
  Sender: FDA-Public Use
  Company Number: None

PATIENT
  Sex: Male
  Weight: 70.31 kg

DRUGS (16)
  1. IMATINIB MESYLATE [Suspect]
     Active Substance: IMATINIB MESYLATE
     Indication: Chronic myeloid leukaemia
     Dosage: FREQUENCY : DAILY;?
     Route: 048
     Dates: start: 202006
  2. HUMIRA 40MG/0.8ML SC [Concomitant]
  3. ASPIRIN [Concomitant]
     Active Substance: ASPIRIN
  4. SIMVASTATIN [Concomitant]
     Active Substance: SIMVASTATIN
  5. TAMSULOSIN [Concomitant]
     Active Substance: TAMSULOSIN
  6. ESCITALOPRAM 10MG [Concomitant]
  7. MYRBETRIQ [Concomitant]
     Active Substance: MIRABEGRON
  8. AMLODIPINE [Concomitant]
     Active Substance: AMLODIPINE BESYLATE
  9. IRON 256MG [Concomitant]
  10. FISH OIL 1200MG [Concomitant]
  11. HYDROXYCHLOROQUINE [Concomitant]
     Active Substance: HYDROXYCHLOROQUINE
  12. VITAMINS [Concomitant]
     Active Substance: VITAMINS
  13. GABAPENTIN [Concomitant]
     Active Substance: GABAPENTIN
  14. FUROSEMIDE [Concomitant]
     Active Substance: FUROSEMIDE
  15. METHOTREXATE [Concomitant]
     Active Substance: METHOTREXATE
  16. FOLIC ACID [Concomitant]
     Active Substance: FOLIC ACID

REACTIONS (1)
  - COVID-19 [None]
